FAERS Safety Report 6443435-8 (Version None)
Quarter: 2009Q4

REPORT INFORMATION
  Report Type: 
  Country: None (occurrence: None)
  Receive Date: 20091117
  Receipt Date: 20091105
  Transmission Date: 20100525
  Serious: Yes (Life-Threatening, Hospitalization)
  Sender: FDA-Public Use
  Company Number: FR-PFIZER INC-2009178659

PATIENT
  Age: 8 Week
  Sex: Male
  Weight: 3.58 kg

DRUGS (3)
  1. ATARAX [Suspect]
     Dosage: 75 MG, UNK
     Route: 064
     Dates: start: 20080101, end: 20081227
  2. ANAFRANIL [Suspect]
     Dosage: 150 MG, UNK
     Route: 064
     Dates: start: 20080101, end: 20081227
  3. NOZINAN [Suspect]
     Dosage: 75 MG, UNK
     Route: 064
     Dates: start: 20080101, end: 20081227

REACTIONS (7)
  - BRADYCARDIA NEONATAL [None]
  - CONVULSION NEONATAL [None]
  - CYANOSIS NEONATAL [None]
  - DRUG EXPOSURE DURING PREGNANCY [None]
  - FOETAL CARDIAC DISORDER [None]
  - HYPOTONIA NEONATAL [None]
  - INFANTILE APNOEIC ATTACK [None]
